FAERS Safety Report 7760572-6 (Version None)
Quarter: 2011Q3

REPORT INFORMATION
  Report Type: 
  Country: None (occurrence: None)
  Receive Date: 20110919
  Receipt Date: 20110912
  Transmission Date: 20111222
  Serious: Yes (Other)
  Sender: FDA-Public Use
  Company Number: US-ACTELION-A-US2011-53968

PATIENT

DRUGS (8)
  1. TRACLEER [Suspect]
     Indication: PULMONARY ARTERIAL HYPERTENSION
     Dosage: 125 MG, BID
     Route: 048
     Dates: start: 20110822
  2. TRACLEER [Suspect]
     Dosage: 62.5 MG, BID
     Route: 048
     Dates: start: 20110101, end: 20110821
  3. LASIX [Concomitant]
  4. AMITRIPTYLINE HCL [Concomitant]
  5. COUMADIN [Concomitant]
  6. REVATIO [Concomitant]
  7. DILANTIN [Concomitant]
  8. CHANTIX [Concomitant]

REACTIONS (3)
  - DYSPNOEA [None]
  - CONVULSION [None]
  - CONDITION AGGRAVATED [None]
